FAERS Safety Report 20669957 (Version 2)
Quarter: 2022Q3

REPORT INFORMATION
  Report Type: Spontaneous
  Country: US (occurrence: US)
  Receive Date: 20220404
  Receipt Date: 20220804
  Transmission Date: 20221026
  Serious: No
  Sender: FDA-Public Use
  Company Number: US-PFIZER INC-202101829769

PATIENT
  Age: 65 Year
  Sex: Male

DRUGS (1)
  1. SUTENT [Suspect]
     Active Substance: SUNITINIB MALATE
     Indication: Bladder cancer
     Dosage: 37.5 MG, 1X/DAY (37.5 MG 1 PO QD CONTINUOUSLY )
     Route: 048

REACTIONS (2)
  - Off label use [Unknown]
  - Emotional distress [Unknown]
